FAERS Safety Report 8343306-6 (Version None)
Quarter: 2012Q2

REPORT INFORMATION
  Report Type: 
  Country: None (occurrence: None)
  Receive Date: 20120508
  Receipt Date: 20120503
  Transmission Date: 20120825
  Serious: Yes (Other)
  Sender: FDA-Public Use
  Company Number: PHHY2012BR038020

PATIENT
  Sex: Female

DRUGS (2)
  1. ASPIRIN [Suspect]
  2. FORMOTEROL FUMARATE [Suspect]

REACTIONS (2)
  - PLATELET AGGREGATION [None]
  - PIGMENTATION DISORDER [None]
